FAERS Safety Report 10686264 (Version 2)
Quarter: 2015Q2

REPORT INFORMATION
  Report Type: Report from Study
  Country: JP (occurrence: JP)
  Receive Date: 20141231
  Receipt Date: 20150414
  Transmission Date: 20150821
  Serious: Yes (Life-Threatening)
  Sender: FDA-Public Use
  Company Number: JP-CELGENE-JPN-2014125165

PATIENT
  Age: 83 Year
  Sex: Female
  Weight: 50 kg

DRUGS (22)
  1. CEFEPIME [Concomitant]
     Active Substance: CEFEPIME\CEFEPIME HYDROCHLORIDE
     Indication: PRODUCT USED FOR UNKNOWN INDICATION
     Route: 065
     Dates: start: 20130221, end: 20130221
  2. VIDAZA [Suspect]
     Active Substance: AZACITIDINE
     Route: 041
     Dates: start: 20130514, end: 20130520
  3. NASEA OD [Concomitant]
     Indication: PRODUCT USED FOR UNKNOWN INDICATION
     Route: 065
     Dates: start: 20130107, end: 20130112
  4. BAKTAR [Concomitant]
     Active Substance: SULFAMETHOXAZOLE\TRIMETHOPRIM
     Indication: PRODUCT USED FOR UNKNOWN INDICATION
     Route: 065
     Dates: start: 20130107
  5. ITRIZOLE [Concomitant]
     Active Substance: ITRACONAZOLE
     Indication: PRODUCT USED FOR UNKNOWN INDICATION
     Route: 065
     Dates: start: 20130107, end: 20130114
  6. VIDAZA [Suspect]
     Active Substance: AZACITIDINE
     Route: 041
     Dates: start: 20130611, end: 20130617
  7. FORSENID [Concomitant]
     Indication: PRODUCT USED FOR UNKNOWN INDICATION
     Route: 065
     Dates: start: 20130130
  8. DIFLUCAN [Concomitant]
     Active Substance: FLUCONAZOLE
     Indication: PRODUCT USED FOR UNKNOWN INDICATION
     Route: 065
     Dates: start: 20130115, end: 20130312
  9. NASEA OD [Concomitant]
     Route: 065
     Dates: start: 20130611, end: 20130617
  10. VIDAZA [Suspect]
     Active Substance: AZACITIDINE
     Route: 058
     Dates: start: 20130219, end: 20130221
  11. VIDAZA [Suspect]
     Active Substance: AZACITIDINE
     Route: 041
     Dates: start: 20130416, end: 20130422
  12. TAKEPRON [Concomitant]
     Active Substance: LANSOPRAZOLE
     Indication: PRODUCT USED FOR UNKNOWN INDICATION
     Route: 065
     Dates: start: 20130109
  13. MAGLAX [Concomitant]
     Active Substance: MAGNESIUM OXIDE
     Indication: PRODUCT USED FOR UNKNOWN INDICATION
     Route: 065
     Dates: start: 20130304
  14. VIDAZA [Suspect]
     Active Substance: AZACITIDINE
     Route: 041
     Dates: start: 20130226, end: 20130301
  15. NASEA OD [Concomitant]
     Route: 065
     Dates: start: 20130514, end: 20130520
  16. DOPAMIN [Concomitant]
     Active Substance: DOPAMINE HYDROCHLORIDE
     Indication: PRODUCT USED FOR UNKNOWN INDICATION
     Route: 065
     Dates: start: 20130221, end: 20130222
  17. RAMOSETRON HYDROCHLORIDE [Concomitant]
     Active Substance: RAMOSETRON HYDROCHLORIDE
     Indication: PRODUCT USED FOR UNKNOWN INDICATION
     Route: 065
     Dates: start: 20130226, end: 20130301
  18. VIDAZA [Suspect]
     Active Substance: AZACITIDINE
     Indication: MYELODYSPLASTIC SYNDROME
     Route: 058
     Dates: start: 20130107, end: 20130112
  19. NASEA OD [Concomitant]
     Route: 065
     Dates: start: 20130319, end: 20130325
  20. NASEA OD [Concomitant]
     Route: 065
     Dates: start: 20130416, end: 20130422
  21. FINIBAX [Concomitant]
     Active Substance: DORIPENEM MONOHYDRATE
     Indication: PRODUCT USED FOR UNKNOWN INDICATION
     Route: 065
     Dates: start: 20130221, end: 20130228
  22. VIDAZA [Suspect]
     Active Substance: AZACITIDINE
     Route: 041
     Dates: start: 20130319, end: 20130325

REACTIONS (4)
  - Shock [Recovered/Resolved]
  - Feeling abnormal [Recovered/Resolved]
  - Pyrexia [Recovered/Resolved]
  - Abdominal pain [Recovered/Resolved]

NARRATIVE: CASE EVENT DATE: 20130221
